FAERS Safety Report 6231598-9 (Version None)
Quarter: 2009Q2

REPORT INFORMATION
  Report Type: 
  Country: None (occurrence: None)
  Receive Date: 20090612
  Receipt Date: 20090612
  Transmission Date: 20091009
  Serious: Yes (Disabling)
  Sender: FDA-Public Use
  Company Number: None

PATIENT
  Age: 54 Year
  Sex: Female
  Weight: 102.0593 kg

DRUGS (1)
  1. IPRATROPIUM BROMIDE [Suspect]
     Indication: SWELLING
     Dosage: 2 SPRAYS 2 TIMES A DAY NASAL, 3 SPRAYS USED
     Route: 045
     Dates: start: 20090602, end: 20090603

REACTIONS (7)
  - ACCIDENTAL EXPOSURE [None]
  - CORNEAL DISORDER [None]
  - IMPAIRED HEALING [None]
  - MYDRIASIS [None]
  - PAIN [None]
  - VISION BLURRED [None]
  - VISUAL IMPAIRMENT [None]
